FAERS Safety Report 12660597 (Version 2)
Quarter: 2016Q3

REPORT INFORMATION
  Report Type: Spontaneous
  Country: US (occurrence: US)
  Receive Date: 20160817
  Receipt Date: 20160901
  Transmission Date: 20161109
  Serious: No
  Sender: FDA-Public Use
  Company Number: US-RELYPSA-RLY2016000517

PATIENT
  Sex: Female

DRUGS (12)
  1. NITROSTAT [Concomitant]
     Active Substance: NITROGLYCERIN
  2. POTASSIUM [Concomitant]
     Active Substance: POTASSIUM
  3. VELTASSA [Suspect]
     Active Substance: PATIROMER
     Indication: HYPERKALAEMIA
     Dosage: 8.4 G, O.D.
     Route: 048
     Dates: start: 20160311
  4. LANTUS [Concomitant]
     Active Substance: INSULIN GLARGINE
  5. ASPIRIN                            /00002701/ [Concomitant]
     Active Substance: ASPIRIN
  6. HYDRALAZINE HCL [Concomitant]
     Active Substance: HYDRALAZINE HYDROCHLORIDE
  7. DOCUSATE SODIUM. [Concomitant]
     Active Substance: DOCUSATE SODIUM
  8. COREG [Concomitant]
     Active Substance: CARVEDILOL
  9. IMDUR [Concomitant]
     Active Substance: ISOSORBIDE MONONITRATE
  10. LASIX [Concomitant]
     Active Substance: FUROSEMIDE
  11. LOSARTAN. [Concomitant]
     Active Substance: LOSARTAN
  12. SIMVASTATIN. [Concomitant]
     Active Substance: SIMVASTATIN

REACTIONS (3)
  - Diarrhoea [Unknown]
  - Fluid retention [Unknown]
  - Constipation [Unknown]
